FAERS Safety Report 6443230-X (Version None)
Quarter: 2009Q4

REPORT INFORMATION
  Report Type: 
  Country: None (occurrence: None)
  Receive Date: 20091117
  Receipt Date: 20091105
  Transmission Date: 20100525
  Serious: Yes (Other)
  Sender: FDA-Public Use
  Company Number: US-ELI_LILLY_AND_COMPANY-US200911001683

PATIENT
  Sex: Female
  Weight: 85.714 kg

DRUGS (4)
  1. CYMBALTA [Suspect]
     Indication: NEURALGIA
     Dosage: 60 MG, DAILY (1/D)
     Route: 065
     Dates: start: 20071031
  2. CYMBALTA [Suspect]
     Dosage: 60 MG, OTHER
     Route: 065
     Dates: start: 20090801
  3. LEVOXYL [Concomitant]
     Dosage: 137 UG, UNKNOWN
     Route: 065
  4. PRAVASTAN [Concomitant]
     Dosage: 40 MG, UNKNOWN
     Route: 065

REACTIONS (3)
  - CHOLECYSTECTOMY [None]
  - OFF LABEL USE [None]
  - PARAESTHESIA [None]
